FAERS Safety Report 5576302-2 (Version None)
Quarter: 2007Q4

REPORT INFORMATION
  Report Type: 
  Country: None (occurrence: None)
  Receive Date: 20071228
  Receipt Date: 20071104
  Transmission Date: 20080405
  Serious: Yes (Hospitalization, Other)
  Sender: FDA-Public Use
  Company Number: US-PURDUE-USA_2007_0030767

PATIENT
  Sex: Male
  Weight: 84 kg

DRUGS (11)
  1. OXYCONTIN [Suspect]
     Indication: OSTEOARTHRITIS
     Dosage: 40 MG, TID
     Route: 048
     Dates: start: 20010901, end: 20051101
  2. VIAGRA [Concomitant]
  3. LEXAPRO [Concomitant]
     Dosage: 10 MG, DAILY
  4. SOMA [Concomitant]
     Dosage: 250 MG, BID
  5. LORCET [Concomitant]
     Dosage: 50 MG, BID
  6. VALIUM [Concomitant]
     Dosage: 10 MG, TID
  7. ZIPRASIDONE HCL [Concomitant]
     Dosage: 60 MG, DAILY
  8. SEROQUEL [Concomitant]
     Dosage: 400 MG, DAILY
  9. VIOXX [Concomitant]
  10. ZOLOFT [Concomitant]
  11. NEXIUM [Concomitant]

REACTIONS (25)
  - ANGER [None]
  - ANXIETY [None]
  - APATHY [None]
  - ASTHENIA [None]
  - CHEST PAIN [None]
  - CHILLS [None]
  - DRUG DEPENDENCE [None]
  - DRUG WITHDRAWAL SYNDROME [None]
  - ERECTILE DYSFUNCTION [None]
  - FEAR [None]
  - FEELINGS OF WORTHLESSNESS [None]
  - HYPERHIDROSIS [None]
  - MALAISE [None]
  - MEMORY IMPAIRMENT [None]
  - MOOD SWINGS [None]
  - NIGHT SWEATS [None]
  - PAIN [None]
  - PARANOIA [None]
  - PERSONALITY CHANGE [None]
  - RENAL DISORDER [None]
  - RENAL PAIN [None]
  - REPETITIVE SPEECH [None]
  - SUICIDAL IDEATION [None]
  - TREMOR [None]
  - VOMITING [None]
